FAERS Safety Report 6012380-4 (Version None)
Quarter: 2008Q4

REPORT INFORMATION
  Report Type: 
  Country: None (occurrence: None)
  Receive Date: 20081218
  Receipt Date: 20080924
  Transmission Date: 20090506
  Serious: No
  Sender: FDA-Public Use
  Company Number: US-ASTRAZENECA-2008UW20169

PATIENT
  Age: 69 Year
  Sex: Female

DRUGS (18)
  1. SYMBICORT [Suspect]
     Indication: LUNG DISORDER
     Dosage: 160/4.5 TWO PUFFS TWICE A DAY
     Route: 055
     Dates: start: 20080916
  2. SYMBICORT [Suspect]
     Indication: ASTHMA
     Dosage: 160/4.5 TWO PUFFS TWICE A DAY
     Route: 055
     Dates: start: 20080916
  3. PRILOSEC [Concomitant]
     Route: 048
  4. COMBIVENT [Concomitant]
  5. ACCOLATE [Concomitant]
  6. MUCINEX [Concomitant]
  7. PREDNISONE TAB [Concomitant]
  8. ALBUTEROL/IPROTROPRIUM/DUONEB [Concomitant]
  9. SPIRIVA [Concomitant]
  10. LASIX [Concomitant]
  11. BACTRIM [Concomitant]
  12. SENOKOT [Concomitant]
  13. KLONOPIN [Concomitant]
  14. CYMBALTA [Concomitant]
  15. TRAZODONE HCL [Concomitant]
  16. VALTREX [Concomitant]
  17. COLACE [Concomitant]
  18. POTASSIUM CHLORIDE [Concomitant]

REACTIONS (6)
  - CONSTIPATION [None]
  - CONTUSION [None]
  - DRUG INEFFECTIVE [None]
  - DYSPNOEA [None]
  - HEADACHE [None]
  - ILL-DEFINED DISORDER [None]
